FAERS Safety Report 5028932-4 (Version None)
Quarter: 2006Q2

REPORT INFORMATION
  Report Type: 
  Country: None (occurrence: None)
  Receive Date: 20060619
  Receipt Date: 20060519
  Transmission Date: 20061013
  Serious: Yes (Other)
  Sender: FDA-Public Use
  Company Number: DE-GLAXOSMITHKLINE-D0049790A

PATIENT
  Age: 73 Year
  Sex: Female
  Weight: 84 kg

DRUGS (6)
  1. AVANDIA [Suspect]
     Route: 048
     Dates: start: 20050801
  2. GLIBENCLAMID-RATIOPHARM [Concomitant]
     Dosage: 3.5MG THREE TIMES PER DAY
     Route: 048
  3. BRISERIN N [Concomitant]
     Dosage: 1TAB PER DAY
     Route: 048
  4. ALLOPURINOL [Concomitant]
     Dosage: 300MG PER DAY
     Route: 048
  5. FURORESE [Concomitant]
     Dosage: 60MG TWICE PER DAY
     Route: 048
  6. THYRONAJOD [Concomitant]
     Dosage: 1TAB PER DAY
     Route: 048

REACTIONS (6)
  - DYSPNOEA [None]
  - FLUID RETENTION [None]
  - HEADACHE [None]
  - JOINT SWELLING [None]
  - OEDEMA [None]
  - WEIGHT INCREASED [None]
